FAERS Safety Report 5336580-1 (Version None)
Quarter: 2007Q2

REPORT INFORMATION
  Report Type: 
  Country: None (occurrence: None)
  Receive Date: 20070524
  Receipt Date: 20070516
  Transmission Date: 20071010
  Serious: Yes (Other)
  Sender: FDA-Public Use
  Company Number: 083-20785-07050930

PATIENT

DRUGS (4)
  1. THALOMID [Suspect]
     Indication: MULTIPLE MYELOMA
     Dosage: 50 MG, DAYS 1-35, ORAL
     Route: 048
  2. BORTEZOMIB (BORTEZOMIB) [Suspect]
     Indication: MULTIPLE MYELOMA
     Dosage: 1.0, 1.3, 1.6MG/M^2, DAYS 1, 4, 15, 22, INTRAVENOUS BOLUS
     Route: 040
  3. MELPHALAN (MELPHALAN) [Suspect]
     Indication: MULTIPLE MYELOMA
     Dosage: 6 MG/M2, DAYS 1-5, ORAL
     Route: 048
  4. PREDNISONE TAB [Suspect]
     Indication: MULTIPLE MYELOMA
     Dosage: 60 MG/M2, DAYS 1-5, ORAL
     Route: 048

REACTIONS (4)
  - FATIGUE [None]
  - INFECTION [None]
  - NEUROPATHY PERIPHERAL [None]
  - VASCULITIS [None]
